FAERS Safety Report 8388968-2 (Version None)
Quarter: 2012Q2

REPORT INFORMATION
  Report Type: 
  Country: None (occurrence: None)
  Receive Date: 20120528
  Receipt Date: 20120518
  Transmission Date: 20120825
  Serious: No
  Sender: FDA-Public Use
  Company Number: US-ASTRAZENECA-2011SE41508

PATIENT
  Age: 62 Year
  Sex: Male

DRUGS (16)
  1. CALCIUM CARBONATE [Concomitant]
     Dosage: 4 A DAY
     Dates: start: 20060101, end: 20090101
  2. CYCLOBENAZPRINE [Concomitant]
     Indication: PAIN
  3. CITALOPRAM HYDROBROMIDE [Concomitant]
     Dates: start: 20090721
  4. LISINOPRIL [Concomitant]
     Indication: BLOOD PRESSURE
     Dates: start: 20090721
  5. TRAMADOL HCL [Concomitant]
     Indication: PAIN
  6. METFORMIN HCL [Concomitant]
     Indication: DIABETES MELLITUS
  7. FLOMAX [Concomitant]
     Dates: start: 20090721
  8. AGGRENOX [Concomitant]
     Dates: start: 20090721
  9. DITYRIDAMOLE [Concomitant]
     Indication: CEREBROVASCULAR ACCIDENT PROPHYLAXIS
  10. OMEPRAZOLE [Concomitant]
     Indication: GASTRIC ULCER
     Dates: start: 20090101
  11. DITYRIDAMOLE [Concomitant]
     Indication: ANTICOAGULANT THERAPY
  12. ASPIRIN [Concomitant]
     Indication: CEREBROVASCULAR ACCIDENT PROPHYLAXIS
     Dates: start: 20090721
  13. NEXIUM [Suspect]
     Indication: GASTRIC ULCER
     Route: 048
     Dates: start: 20010101, end: 20060101
  14. HYDROCODONE BITARTRATE [Concomitant]
     Indication: PAIN
  15. DOXYAZOSIN [Concomitant]
     Indication: PROSTATOMEGALY
  16. NEURONTIN [Concomitant]
     Indication: PAIN
     Dates: start: 20090721

REACTIONS (7)
  - VITAMIN D DEFICIENCY [None]
  - UPPER LIMB FRACTURE [None]
  - ANDROGEN DEFICIENCY [None]
  - CALCIUM DEFICIENCY [None]
  - EMOTIONAL DISTRESS [None]
  - OSTEOPOROSIS [None]
  - FOOT FRACTURE [None]
